FAERS Safety Report 4409454-8 (Version None)
Quarter: 2004Q3

REPORT INFORMATION
  Report Type: 
  Country: None (occurrence: None)
  Receive Date: 20040723
  Receipt Date: 20040712
  Transmission Date: 20050211
  Serious: Yes (Life-Threatening, Hospitalization, Other)
  Sender: FDA-Public Use
  Company Number: 2004040233

PATIENT
  Age: 67 Year
  Sex: Male
  Weight: 63.9572 kg

DRUGS (1)
  1. GEODON [Suspect]
     Indication: DEPRESSION
     Dosage: 20 MG, INTRAMUSCULAR
     Route: 030
     Dates: start: 20040305, end: 20040305

REACTIONS (4)
  - BLOOD PRESSURE INCREASED [None]
  - COMA [None]
  - DEPRESSED LEVEL OF CONSCIOUSNESS [None]
  - VENTRICULAR EXTRASYSTOLES [None]
